FAERS Safety Report 24299956 (Version 1)
Quarter: 2024Q3

REPORT INFORMATION
  Report Type: Spontaneous
  Country: CN (occurrence: CN)
  Receive Date: 20240909
  Receipt Date: 20240909
  Transmission Date: 20241016
  Serious: Yes (Hospitalization, Other)
  Sender: PURDUE
  Company Number: CN-NAPPMUNDI-GBR-2024-0119478

PATIENT
  Age: 70 Year
  Sex: Male
  Weight: 65 kg

DRUGS (2)
  1. OXYCODONE HYDROCHLORIDE [Suspect]
     Active Substance: OXYCODONE HYDROCHLORIDE
     Indication: Tumour pain
     Dosage: 40 MILLIGRAM, BID
     Route: 048
     Dates: start: 20240730, end: 20240827
  2. OXYCODONE HYDROCHLORIDE [Suspect]
     Active Substance: OXYCODONE HYDROCHLORIDE
     Dosage: 20 MILLIGRAM, BID
     Route: 048
     Dates: start: 20240730, end: 20240827

REACTIONS (4)
  - Constipation [Recovering/Resolving]
  - Dysphoria [Recovering/Resolving]
  - Altered state of consciousness [Recovering/Resolving]
  - Nausea [Recovering/Resolving]

NARRATIVE: CASE EVENT DATE: 20240825
